FAERS Safety Report 16684173 (Version 3)
Quarter: 2022Q1

REPORT INFORMATION
  Report Type: Spontaneous
  Country: JP (occurrence: JP)
  Receive Date: 20190808
  Receipt Date: 20220302
  Transmission Date: 20220423
  Serious: Yes (Death, Other)
  Sender: FDA-Public Use
  Company Number: JP-JNJFOC-20190804791

PATIENT
  Age: 75 Year
  Sex: Female

DRUGS (10)
  1. TREMFYA [Suspect]
     Active Substance: GUSELKUMAB
     Indication: Psoriasis
     Route: 058
     Dates: start: 20190620, end: 20190703
  2. TREMFYA [Suspect]
     Active Substance: GUSELKUMAB
  3. TREMFYA [Suspect]
     Active Substance: GUSELKUMAB
  4. PREDNISOLONE [Suspect]
     Active Substance: PREDNISOLONE
     Indication: Product used for unknown indication
     Route: 048
     Dates: start: 20190705, end: 20190716
  5. PREDNISOLONE [Suspect]
     Active Substance: PREDNISOLONE
     Route: 048
     Dates: start: 20190705, end: 20190716
  6. BASEN                              /01290601/ [Concomitant]
     Indication: Diabetes mellitus
     Route: 048
  7. SERMION                            /00396401/ [Concomitant]
     Indication: Multiple system atrophy
     Route: 048
  8. TIZANIDINE [Concomitant]
     Active Substance: TIZANIDINE
     Indication: Multiple system atrophy
     Route: 048
  9. ONEALFA [Concomitant]
     Active Substance: ALFACALCIDOL
     Indication: Osteoporosis
     Route: 048
  10. IMIDAPRIL [Concomitant]
     Active Substance: IMIDAPRIL
     Indication: Hypertension
     Route: 048

REACTIONS (4)
  - Intestinal perforation [Fatal]
  - Interstitial lung disease [Fatal]
  - Perinephric abscess [Fatal]
  - Septic shock [Fatal]

NARRATIVE: CASE EVENT DATE: 20190601
